FAERS Safety Report 4565849-3 (Version None)
Quarter: 2005Q1

REPORT INFORMATION
  Report Type: 
  Country: None (occurrence: None)
  Receive Date: 20050131
  Receipt Date: 20050121
  Transmission Date: 20050727
  Serious: Yes (Other)
  Sender: FDA-Public Use
  Company Number: AT-ABBOTT-05P-009-0288052-00

PATIENT
  Sex: Female
  Weight: 60 kg

DRUGS (4)
  1. HUMIRA [Suspect]
     Indication: POLYARTHRITIS
     Route: 058
     Dates: start: 20040720, end: 20041111
  2. PREDNISOLONE [Concomitant]
     Indication: POLYARTHRITIS
     Route: 048
  3. KETOPROFEN [Concomitant]
     Indication: POLYARTHRITIS
     Route: 048
  4. CALDEVITA [Concomitant]
     Indication: POLYARTHRITIS
     Route: 048

REACTIONS (1)
  - PULMONARY SARCOIDOSIS [None]
